FAERS Safety Report 6249098-9 (Version None)
Quarter: 2009Q2

REPORT INFORMATION
  Report Type: 
  Country: None (occurrence: None)
  Receive Date: 20090624
  Receipt Date: 20090624
  Transmission Date: 20091009
  Serious: Yes (Life-Threatening, Hospitalization)
  Sender: FDA-Public Use
  Company Number: None

PATIENT
  Age: 81 Year
  Sex: Male
  Weight: 75 kg

DRUGS (3)
  1. DOCETAXEL [Suspect]
  2. CISPLATIN [Suspect]
  3. FLUOROURACIL [Suspect]

REACTIONS (2)
  - NEUTROPENIA [None]
  - RENAL FAILURE ACUTE [None]
